FAERS Safety Report 16834976 (Version 3)
Quarter: 2022Q2

REPORT INFORMATION
  Report Type: Spontaneous
  Country: JP (occurrence: JP)
  Receive Date: 20190920
  Receipt Date: 20220615
  Transmission Date: 20220721
  Serious: Yes (Death, Life-Threatening, Other)
  Sender: FDA-Public Use
  Company Number: JP-ELI_LILLY_AND_COMPANY-JP201909003010

PATIENT
  Age: 50 Year
  Sex: Male
  Weight: 42 kg

DRUGS (2)
  1. CYRAMZA [Suspect]
     Active Substance: RAMUCIRUMAB
     Indication: Oesophageal cancer metastatic
     Dosage: UNK
     Route: 041
     Dates: start: 201801
  2. PACLITAXEL [Suspect]
     Active Substance: PACLITAXEL
     Indication: Oesophageal cancer metastatic
     Dosage: UNK
     Route: 042
     Dates: start: 201801

REACTIONS (5)
  - Disseminated intravascular coagulation [Fatal]
  - Hepatic failure [Fatal]
  - Tumour haemorrhage [Fatal]
  - Pseudocirrhosis [Unknown]
  - Portal hypertension [Unknown]

NARRATIVE: CASE EVENT DATE: 20180701
